FAERS Safety Report 5683532-8 (Version None)
Quarter: 2008Q1

REPORT INFORMATION
  Report Type: 
  Country: None (occurrence: None)
  Receive Date: 20080326
  Receipt Date: 20080317
  Transmission Date: 20080703
  Serious: Yes (Hospitalization)
  Sender: FDA-Public Use
  Company Number: 2008-00619

PATIENT
  Age: 54 Year
  Sex: Female

DRUGS (8)
  1. VELCADE [Suspect]
     Indication: MULTIPLE MYELOMA
  2. MELPHALAN(MELPHALAN) VIAL [Suspect]
     Indication: MULTIPLE MYELOMA
  3. PROPRANOLOL [Concomitant]
  4. VALACYCLOVIR HCL [Concomitant]
  5. PREVISCAN (FLUINDIONE) [Concomitant]
  6. DI-ANTALVIC (PARACETAMOL, DEXTROPROPOXYPHENE HYDROCHLORIDE) [Concomitant]
  7. PAROXETINE HCL [Concomitant]
  8. LEVOTHYROXINE SODIUM [Concomitant]

REACTIONS (19)
  - ASTHENIA [None]
  - BLOOD FIBRINOGEN INCREASED [None]
  - BREATH SOUNDS ABNORMAL [None]
  - CHEST PAIN [None]
  - CONDITION AGGRAVATED [None]
  - COUGH [None]
  - CYTOLYTIC HEPATITIS [None]
  - DYSPNOEA [None]
  - EAR, NOSE AND THROAT EXAMINATION ABNORMAL [None]
  - HEARING IMPAIRED [None]
  - INFECTION [None]
  - INTERNATIONAL NORMALISED RATIO INCREASED [None]
  - LUNG DISORDER [None]
  - MULTIPLE MYELOMA [None]
  - OVERDOSE [None]
  - PNEUMOCOCCAL SEPSIS [None]
  - PROTHROMBIN LEVEL INCREASED [None]
  - PYREXIA [None]
  - VIRAL INFECTION [None]
